FAERS Safety Report 21293886 (Version 1)
Quarter: 2022Q3

REPORT INFORMATION
  Report Type: Spontaneous
  Country: US (occurrence: US)
  Receive Date: 20220905
  Receipt Date: 20220905
  Transmission Date: 20221026
  Serious: No
  Sender: FDA-Public Use
  Company Number: US-drreddys-SPO/USA/22/0153643

PATIENT
  Sex: Female

DRUGS (2)
  1. ACCUTANE [Suspect]
     Active Substance: ISOTRETINOIN
     Indication: Product used for unknown indication
     Dates: end: 20220816
  2. ACCUTANE [Suspect]
     Active Substance: ISOTRETINOIN
     Dates: end: 20220816

REACTIONS (1)
  - Vision blurred [Unknown]
